FAERS Safety Report 6072680-9 (Version None)
Quarter: 2009Q1

REPORT INFORMATION
  Report Type: 
  Country: None (occurrence: None)
  Receive Date: 20090210
  Receipt Date: 20081208
  Transmission Date: 20090719
  Serious: Yes (Hospitalization)
  Sender: FDA-Public Use
  Company Number: GB-PFIZER INC-2008154477

PATIENT

DRUGS (11)
  1. ATORVASTATIN CALCIUM [Suspect]
     Dosage: UNK
     Dates: start: 20051101, end: 20050101
  2. AMITRIPTYLINE [Suspect]
     Dosage: 50 MG, 1X/DAY
     Dates: end: 20050101
  3. ETANERCEPT [Suspect]
     Indication: PSORIATIC ARTHROPATHY
     Dosage: 50 MG, WEEKLY
     Route: 058
     Dates: start: 20050901, end: 20050101
  4. ETANERCEPT [Suspect]
     Indication: PSORIASIS
     Dosage: 25 MG, WEEKLY
     Dates: start: 20051201
  5. CALCIPOTRIOL [Concomitant]
     Dosage: UNK
  6. EPADERM [Concomitant]
     Dosage: UNK
  7. FERROUS SULPHATE [Concomitant]
     Dosage: UNK
  8. FOLIC ACID [Concomitant]
     Dosage: UNK
  9. MORPHINE SULFATE [Concomitant]
     Dosage: 40 MG, 2X/DAY
     Dates: start: 20050101, end: 20050101
  10. NITRAZEPAM [Concomitant]
     Dosage: UNK
  11. OMEPRAZOLE [Concomitant]
     Dosage: UNK

REACTIONS (4)
  - CONDITION AGGRAVATED [None]
  - HEPATOTOXICITY [None]
  - PSORIASIS [None]
  - URINARY TRACT INFECTION [None]
